FAERS Safety Report 4571780-X (Version None)
Quarter: 2005Q1

REPORT INFORMATION
  Report Type: 
  Country: None (occurrence: None)
  Receive Date: 20050207
  Receipt Date: 20050131
  Transmission Date: 20050727
  Serious: Yes (Hospitalization)
  Sender: FDA-Public Use
  Company Number: US-JNJFOC-20050200518

PATIENT
  Sex: Female

DRUGS (2)
  1. DURAGESIC [Suspect]
     Route: 062
     Dates: start: 20040601
  2. MS CONTIN [Concomitant]
     Dosage: 30 MG, TWO TO THREE TIMES PER MONTH
     Route: 049
     Dates: start: 20041101

REACTIONS (3)
  - FLUID OVERLOAD [None]
  - GASTROENTERITIS VIRAL [None]
  - INFLUENZA [None]
